FAERS Safety Report 9704795 (Version 2)
Quarter: 2013Q4

REPORT INFORMATION
  Report Type: Spontaneous
  Country: JP (occurrence: JP)
  Receive Date: 20131122
  Receipt Date: 20131210
  Transmission Date: 20140711
  Serious: Yes (Hospitalization)
  Sender: FDA-Public Use
  Company Number: JP-ABBVIE-13P-087-1170090-00

PATIENT
  Sex: Female

DRUGS (2)
  1. KALETRA [Suspect]
     Indication: HIV INFECTION
  2. COMBIVIR [Suspect]
     Indication: HIV INFECTION

REACTIONS (3)
  - Pre-eclampsia [Unknown]
  - Hypertension [Unknown]
  - Nephropathy [Unknown]
